FAERS Safety Report 5483825-3 (Version None)
Quarter: 2007Q4

REPORT INFORMATION
  Report Type: 
  Country: None (occurrence: None)
  Receive Date: 20071010
  Receipt Date: 20071008
  Transmission Date: 20080405
  Serious: Yes (Other)
  Sender: FDA-Public Use
  Company Number: 017712

PATIENT
  Sex: Female

DRUGS (2)
  1. ADDERALL 10 [Suspect]
  2. ADDERALL XR  20 [Suspect]

REACTIONS (2)
  - AORTIC VALVE INCOMPETENCE [None]
  - PULMONARY HYPERTENSION [None]
